FAERS Safety Report 7007568-X (Version None)
Quarter: 2010Q3

REPORT INFORMATION
  Report Type: 
  Country: None (occurrence: None)
  Receive Date: 20100922
  Receipt Date: 20100916
  Transmission Date: 20110219
  Serious: Yes (Other)
  Sender: FDA-Public Use
  Company Number: CA-BRACCO-000265

PATIENT
  Sex: Male

DRUGS (1)
  1. ISOVUE-370 [Suspect]
     Indication: SCAN BRAIN
     Route: 042
     Dates: start: 20100607, end: 20100607

REACTIONS (2)
  - DYSPHAGIA [None]
  - DYSPNOEA [None]
